FAERS Safety Report 4370663-8 (Version None)
Quarter: 2004Q2

REPORT INFORMATION
  Report Type: 
  Country: None (occurrence: None)
  Receive Date: 20040526
  Receipt Date: 20040513
  Transmission Date: 20050107
  Serious: Yes (Life-Threatening, Hospitalization, Other)
  Sender: FDA-Public Use
  Company Number: HQWYE876213MAY04

PATIENT
  Age: 18 Year
  Sex: Male

DRUGS (7)
  1. CHILDREN'S ADVIL [Suspect]
     Indication: PYREXIA
     Route: 048
     Dates: start: 20040214, end: 20040216
  2. ACETAMINOPHEN [Suspect]
     Route: 048
     Dates: start: 20040214
  3. MAXILASE (AMYLASE, ) [Suspect]
     Route: 048
     Dates: start: 20040212, end: 20040214
  4. CEFPODOXIME PROXETIL [Suspect]
     Route: 048
     Dates: start: 20040216, end: 20040216
  5. PANFUREX (NIFUROXAZIDE,  ) [Suspect]
     Route: 048
     Dates: start: 20040214, end: 20040216
  6. TIXOCORTOL PIVALATE [Suspect]
     Route: 048
     Dates: start: 20040212, end: 20020214
  7. PRIMPERAN TAB [Suspect]
     Route: 045
     Dates: start: 20040214, end: 20040216

REACTIONS (20)
  - ASTHENIA [None]
  - BLOOD IMMUNOGLOBULIN G INCREASED [None]
  - CARDIOMEGALY [None]
  - CHEST X-RAY ABNORMAL [None]
  - GASTROENTERITIS [None]
  - HAEMATURIA [None]
  - HAEMOLYTIC ANAEMIA [None]
  - HEART RATE INCREASED [None]
  - KIDNEY ENLARGEMENT [None]
  - MUMPS [None]
  - MYCOPLASMA SEROLOGY POSITIVE [None]
  - NORMOCHROMIC NORMOCYTIC ANAEMIA [None]
  - OTITIS MEDIA [None]
  - OXYGEN SATURATION DECREASED [None]
  - PARKINSON'S DISEASE [None]
  - PERITONEAL DIALYSIS [None]
  - RENAL FAILURE ACUTE [None]
  - RENAL TUBULAR NECROSIS [None]
  - RENAL VESSEL DISORDER [None]
  - THROMBOCYTOPENIA [None]
